FAERS Safety Report 23204721 (Version 1)
Quarter: 2023Q4

REPORT INFORMATION
  Report Type: Spontaneous
  Country: DE (occurrence: DE)
  Receive Date: 20231120
  Receipt Date: 20231120
  Transmission Date: 20240110
  Serious: Yes (Other)
  Sender: FDA-Public Use
  Company Number: DE-SAMSUNG BIOEPIS-SB-2023-30464

PATIENT
  Sex: Female

DRUGS (1)
  1. ETANERCEPT [Suspect]
     Active Substance: ETANERCEPT
     Indication: Polyarthritis
     Dosage: UNKNOWN
     Route: 058
     Dates: start: 202305

REACTIONS (3)
  - Polyarthritis [Unknown]
  - Sensitivity to weather change [Unknown]
  - Product use in unapproved indication [Unknown]
